FAERS Safety Report 10866028 (Version 4)
Quarter: 2015Q1

REPORT INFORMATION
  Report Type: Spontaneous
  Country: FR (occurrence: FR)
  Receive Date: 20150225
  Receipt Date: 20150311
  Transmission Date: 20150721
  Serious: Yes (Congenital Anomaly)
  Sender: FDA-Public Use
  Company Number: PHHY2015FR021684

PATIENT
  Sex: Male
  Weight: 3.31 kg

DRUGS (2)
  1. GILENYA [Suspect]
     Active Substance: FINGOLIMOD HYDROCHLORIDE
     Indication: MULTIPLE SCLEROSIS
     Dosage: MATERNAL DOSE:0.5 MG DAILY
     Route: 064
     Dates: end: 20131030
  2. PREDNISONE. [Suspect]
     Active Substance: PREDNISONE
     Indication: MULTIPLE SCLEROSIS RELAPSE
     Dosage: MATERNAL DOSE
     Route: 064
     Dates: start: 201401, end: 201403

REACTIONS (2)
  - Foetal exposure during pregnancy [Unknown]
  - Micropenis [Unknown]
